FAERS Safety Report 8259366-7 (Version None)
Quarter: 2012Q2

REPORT INFORMATION
  Report Type: 
  Country: None (occurrence: None)
  Receive Date: 20120404
  Receipt Date: 20120328
  Transmission Date: 20120825
  Serious: Yes (Hospitalization)
  Sender: FDA-Public Use
  Company Number: US-BAYER-2011-050837

PATIENT
  Age: 37 Year
  Sex: Female
  Weight: 57 kg

DRUGS (9)
  1. DAYQUIL [DEXTROMET HBR,PARACET,PSEUDOEPH HCL] [Concomitant]
     Dosage: UNK UNK, PRN
     Route: 048
     Dates: start: 20080803
  2. YAZ [Suspect]
  3. IMITREX [Concomitant]
     Indication: MIGRAINE
     Dosage: 100 MG, PRN
     Route: 048
     Dates: start: 19900101
  4. PREVACID [Concomitant]
     Dosage: 30 MG, QID
     Route: 048
     Dates: start: 20080616
  5. YAZ [Suspect]
     Indication: CONTRACEPTION
     Dosage: UNK
     Dates: start: 20070101, end: 20080101
  6. TUMS [CALCIUM CARBONATE,MAGNESIUM CARBONATE,MAGNESIUM TRISILICATE] [Concomitant]
     Dosage: UNK
     Route: 048
     Dates: start: 20080613
  7. OMEPRAZOLE [Concomitant]
     Indication: ABDOMINAL PAIN UPPER
     Dosage: 20 MG, QOD
     Route: 048
     Dates: start: 20080613
  8. BENTYL [Concomitant]
     Indication: ABDOMINAL PAIN UPPER
     Dosage: 20 MG, TID
     Route: 048
     Dates: start: 20080613
  9. SUDAFED 12 HOUR [Concomitant]
     Dosage: 30 MG, BID
     Route: 048
     Dates: start: 20080803

REACTIONS (3)
  - PAIN [None]
  - BILIARY COLIC [None]
  - CHOLECYSTITIS CHRONIC [None]
